FAERS Safety Report 23717136 (Version 2)
Quarter: 2024Q2

REPORT INFORMATION
  Report Type: Spontaneous
  Country: US (occurrence: US)
  Receive Date: 20240408
  Receipt Date: 20240528
  Transmission Date: 20240716
  Serious: No
  Sender: FDA-Public Use
  Company Number: US-KYOWAKIRIN-2024KK007380

PATIENT

DRUGS (1)
  1. CRYSVITA [Suspect]
     Active Substance: BUROSUMAB-TWZA
     Indication: Hereditary hypophosphataemic rickets
     Dosage: 20 MG, 1X/2 WEEKS (1 ML)
     Route: 058

REACTIONS (7)
  - Weight increased [Unknown]
  - Gait disturbance [Unknown]
  - Pain in extremity [Unknown]
  - Sleep disorder [Unknown]
  - Condition aggravated [Unknown]
  - Crying [Unknown]
  - Injection site oedema [Unknown]

NARRATIVE: CASE EVENT DATE: 20240101
